FAERS Safety Report 13868364 (Version 1)
Quarter: 2017Q3

REPORT INFORMATION
  Report Type: Spontaneous
  Country: US (occurrence: US)
  Receive Date: 20170815
  Receipt Date: 20170815
  Transmission Date: 20171127
  Serious: Yes (Life-Threatening, Hospitalization)
  Sender: FDA-Public Use
  Company Number: US-BEH-2017082743

PATIENT
  Age: 47 Year
  Sex: Female
  Weight: 70.75 kg

DRUGS (17)
  1. NEURONTIN [Concomitant]
     Active Substance: GABAPENTIN
  2. HYDROMORPHONE [Concomitant]
     Active Substance: HYDROMORPHONE
  3. HAEMATE P [Suspect]
     Active Substance: ANTIHEMOPHILIC FACTOR HUMAN
     Indication: VON WILLEBRAND^S DISEASE
     Dosage: 5600 RCOF IU, TIW
     Route: 042
  4. CARVEDILOL. [Concomitant]
     Active Substance: CARVEDILOL
  5. LONASEN [Concomitant]
     Active Substance: BLONANSERIN
  6. DURAGESIC [Concomitant]
     Active Substance: FENTANYL
  7. PREMARIN [Concomitant]
     Active Substance: ESTROGENS, CONJUGATED
  8. LISINOPRIL. [Concomitant]
     Active Substance: LISINOPRIL
  9. REQUIP [Concomitant]
     Active Substance: ROPINIROLE HYDROCHLORIDE
  10. SUCRALFATE. [Concomitant]
     Active Substance: SUCRALFATE
  11. SPIRONOLACTONE. [Concomitant]
     Active Substance: SPIRONOLACTONE
  12. CLONAZEPAM. [Concomitant]
     Active Substance: CLONAZEPAM
  13. PROVENTIL [Concomitant]
     Active Substance: ALBUTEROL
  14. FERROUS SULFATE. [Concomitant]
     Active Substance: FERROUS SULFATE
  15. HAEMATE P [Suspect]
     Active Substance: ANTIHEMOPHILIC FACTOR HUMAN
     Dosage: UNK
     Route: 042
  16. LEVAQUIN [Concomitant]
     Active Substance: LEVOFLOXACIN
  17. ZOFRAN [Concomitant]
     Active Substance: ONDANSETRON HYDROCHLORIDE

REACTIONS (1)
  - Respiratory failure [Unknown]

NARRATIVE: CASE EVENT DATE: 201707
